FAERS Safety Report 10093075 (Version 1)
Quarter: 2014Q2

REPORT INFORMATION
  Report Type: Spontaneous
  Country: US (occurrence: US)
  Receive Date: 20140421
  Receipt Date: 20140421
  Transmission Date: 20141212
  Serious: No
  Sender: FDA-Public Use
  Company Number: US-SANOFI-AVENTIS-2013SA092702

PATIENT
  Age: 75 Year
  Sex: Female

DRUGS (2)
  1. ALLEGRA [Suspect]
     Indication: RASH
     Route: 048
     Dates: start: 20130906
  2. DIPHENHYDRAMINE HYDROCHLORIDE [Concomitant]

REACTIONS (3)
  - Pollakiuria [Unknown]
  - Urine output increased [Unknown]
  - Rash [Unknown]
